FAERS Safety Report 11692235 (Version 1)
Quarter: 2015Q4

REPORT INFORMATION
  Report Type: Spontaneous
  Country: US (occurrence: None)
  Receive Date: 20151027
  Receipt Date: 20151027
  Transmission Date: 20160304
  Serious: Yes (Life-Threatening, Hospitalization)
  Sender: FDA-Public Use
  Company Number: NCL-CC-0315-02

PATIENT
  Age: 78 Year
  Sex: Female
  Weight: 61.24 kg

DRUGS (4)
  1. SYNTHROID [Concomitant]
     Active Substance: LEVOTHYROXINE SODIUM
  2. LETROZOLE 2.5 MG, BRECKENRIDGE PHARMACEUTICAL, INC . [Suspect]
     Active Substance: LETROZOLE
     Indication: BREAST CANCER
     Route: 048
     Dates: start: 201406, end: 201501
  3. XARELTO [Concomitant]
     Active Substance: RIVAROXABAN
  4. NEURONTIN [Concomitant]
     Active Substance: GABAPENTIN

REACTIONS (3)
  - Dyspnoea [None]
  - Pulmonary embolism [None]
  - Cough [None]

NARRATIVE: CASE EVENT DATE: 20150102
